FAERS Safety Report 15947081 (Version 3)
Quarter: 2019Q3

REPORT INFORMATION
  Report Type: Spontaneous
  Country: US (occurrence: US)
  Receive Date: 20190212
  Receipt Date: 20190701
  Transmission Date: 20191004
  Serious: Yes (Hospitalization, Other)
  Sender: FDA-Public Use
  Company Number: US-GLAXOSMITHKLINE-US2019GSK024680

PATIENT
  Age: 75 Year
  Sex: Female
  Weight: 99 kg

DRUGS (2)
  1. ADVAIR HFA [Suspect]
     Active Substance: FLUTICASONE PROPIONATE\SALMETEROL XINAFOATE
  2. BREO ELLIPTA [Suspect]
     Active Substance: FLUTICASONE FUROATE\VILANTEROL TRIFENATATE
     Indication: PRODUCT USED FOR UNKNOWN INDICATION
     Dosage: 1 PUFF(S), QD
     Route: 048
     Dates: start: 20190123, end: 20190124

REACTIONS (7)
  - Head injury [Unknown]
  - Headache [Unknown]
  - Loss of consciousness [Unknown]
  - Condition aggravated [Unknown]
  - Wrong technique in device usage process [Recovered/Resolved]
  - Syncope [Recovered/Resolved]
  - Oxygen saturation decreased [Unknown]

NARRATIVE: CASE EVENT DATE: 20190123
